FAERS Safety Report 21113002 (Version 1)
Quarter: 2022Q3

REPORT INFORMATION
  Report Type: Spontaneous
  Country: US (occurrence: None)
  Receive Date: 20220721
  Receipt Date: 20220721
  Transmission Date: 20221026
  Serious: No
  Sender: FDA-Public Use
  Company Number: None

PATIENT
  Age: 80 Year
  Sex: Female

DRUGS (1)
  1. DOXYCYCLINE HYCLATE [Suspect]
     Active Substance: DOXYCYCLINE HYCLATE
     Indication: Urinary tract infection
     Dosage: 100 MG BID ?
     Dates: start: 20210806, end: 20211005

REACTIONS (3)
  - Systemic lupus erythematosus [None]
  - Condition aggravated [None]
  - Dermatitis bullous [None]

NARRATIVE: CASE EVENT DATE: 20211005
